FAERS Safety Report 11038646 (Version 1)
Quarter: 2015Q2

REPORT INFORMATION
  Report Type: Spontaneous
  Country: US (occurrence: US)
  Receive Date: 20150416
  Receipt Date: 20150416
  Transmission Date: 20150821
  Serious: Yes (Hospitalization, Other)
  Sender: FDA-Public Use
  Company Number: US-ENDO PHARMACEUTICALS INC.-201412011

PATIENT
  Age: 63 Year
  Sex: Male
  Weight: 106.69 kg

DRUGS (11)
  1. ASPIRIN. [Concomitant]
     Active Substance: ASPIRIN
  2. TESTIM [Suspect]
     Active Substance: TESTOSTERONE
     Route: 062
     Dates: start: 2005, end: 2012
  3. ANDROGEL [Suspect]
     Active Substance: TESTOSTERONE
     Indication: BLOOD TESTOSTERONE DECREASED
     Route: 061
     Dates: start: 200303, end: 200503
  4. PLAVIX [Concomitant]
     Active Substance: CLOPIDOGREL BISULFATE
  5. ALTACE [Concomitant]
     Active Substance: RAMIPRIL
  6. LIPITOR [Concomitant]
     Active Substance: ATORVASTATIN CALCIUM
  7. TESTIM [Suspect]
     Active Substance: TESTOSTERONE
     Indication: BLOOD TESTOSTERONE DECREASED
     Route: 062
     Dates: start: 200503, end: 200508
  8. NORVASC [Concomitant]
     Active Substance: AMLODIPINE BESYLATE
  9. TESTIM [Suspect]
     Active Substance: TESTOSTERONE
     Dosage: DURING THE MONTH OF 4-2012
  10. ANDROGEL [Suspect]
     Active Substance: TESTOSTERONE
     Dates: start: 200508, end: 201204
  11. ANDROGEL [Suspect]
     Active Substance: TESTOSTERONE
     Route: 061
     Dates: start: 2003, end: 2005

REACTIONS (4)
  - Cardiac failure congestive [Unknown]
  - Myocardial infarction [Unknown]
  - Coronary artery disease [Unknown]
  - Aortic stenosis [Unknown]

NARRATIVE: CASE EVENT DATE: 2008
